FAERS Safety Report 23345063 (Version 1)
Quarter: 2023Q4

REPORT INFORMATION
  Report Type: Spontaneous
  Country: US (occurrence: US)
  Receive Date: 20231228
  Receipt Date: 20231228
  Transmission Date: 20240109
  Serious: No
  Sender: FDA-Public Use
  Company Number: US-Horizon-2020HZN00744

PATIENT

DRUGS (7)
  1. ACTIMMUNE [Suspect]
     Active Substance: INTERFERON GAMMA-1B
     Dosage: 115 MCG X3 WEEK
     Route: 058
     Dates: start: 20120123
  2. BACTRIM [Concomitant]
     Active Substance: SULFAMETHOXAZOLE\TRIMETHOPRIM
  3. ITRACONAZOLE [Concomitant]
     Active Substance: ITRACONAZOLE
  4. AZITHROMYCIN [Concomitant]
     Active Substance: AZITHROMYCIN
  5. PATANASE [Concomitant]
     Active Substance: OLOPATADINE HYDROCHLORIDE
     Dosage: UNK
  6. VENTOLIN [Concomitant]
     Active Substance: ALBUTEROL SULFATE
     Dosage: UNK
  7. ALLEGRA [Concomitant]
     Active Substance: FEXOFENADINE HYDROCHLORIDE
     Indication: Hypersensitivity

REACTIONS (2)
  - Brain fog [Recovered/Resolved]
  - Treatment noncompliance [Not Recovered/Not Resolved]
